FAERS Safety Report 6439896-0 (Version None)
Quarter: 2009Q4

REPORT INFORMATION
  Report Type: 
  Country: None (occurrence: None)
  Receive Date: 20091113
  Receipt Date: 20091104
  Transmission Date: 20100525
  Serious: Yes (Other)
  Sender: FDA-Public Use
  Company Number: US-ASTRAZENECA-2009SE24349

PATIENT
  Age: 61 Year
  Sex: Female

DRUGS (9)
  1. PULMICORT RESPULES [Suspect]
     Route: 055
  2. DUONEB [Suspect]
     Route: 065
  3. FLOVENT HFA-CFC FREE INHALER [Suspect]
     Indication: CHRONIC OBSTRUCTIVE PULMONARY DISEASE
     Dosage: 220 MCG, 2 PUFF
     Route: 055
     Dates: start: 20030101
  4. FLUCONAZOLE [Concomitant]
  5. DICYCLOMINE HYDROCHLORIDE [Concomitant]
  6. PANTOPRAZOLE [Concomitant]
  7. FRUSEMIDE [Concomitant]
  8. POTASSIUM CHLORIDE [Concomitant]
  9. LORAZEPAM [Concomitant]

REACTIONS (8)
  - BREATH SOUNDS ABNORMAL [None]
  - CHRONIC OBSTRUCTIVE PULMONARY DISEASE [None]
  - LOWER RESPIRATORY TRACT INFECTION [None]
  - LUNG DISORDER [None]
  - MALAISE [None]
  - PNEUMONIA [None]
  - PRODUCTIVE COUGH [None]
  - THERAPEUTIC RESPONSE DECREASED [None]
